FAERS Safety Report 13373937 (Version 2)
Quarter: 2017Q3

REPORT INFORMATION
  Report Type: Spontaneous
  Country: US (occurrence: US)
  Receive Date: 20170327
  Receipt Date: 20170712
  Transmission Date: 20171127
  Serious: No
  Sender: FDA-Public Use
  Company Number: US-PFIZER INC-2017130504

PATIENT
  Age: 62 Year
  Sex: Female

DRUGS (2)
  1. METHOTREXATE. [Suspect]
     Active Substance: METHOTREXATE
     Dosage: 10 MG, WEEKLY (2.5 MG TAB (4 TABS PO ONCE A WEEK))
     Route: 048
  2. XELJANZ [Suspect]
     Active Substance: TOFACITINIB CITRATE
     Dosage: 5 MG, 2X/DAY

REACTIONS (8)
  - Hypoaesthesia [Unknown]
  - Joint swelling [Unknown]
  - Foot deformity [Unknown]
  - Arthralgia [Unknown]
  - Pain [Unknown]
  - Peripheral coldness [Unknown]
  - Joint range of motion decreased [Unknown]
  - Hand deformity [Unknown]
